FAERS Safety Report 9385907 (Version 1)
Quarter: 2013Q3

REPORT INFORMATION
  Report Type: Spontaneous
  Country: IE (occurrence: IE)
  Receive Date: 20130705
  Receipt Date: 20130705
  Transmission Date: 20140515
  Serious: Yes (Death)
  Sender: FDA-Public Use
  Company Number: IE-ASTRAZENECA-2013SE50091

PATIENT
  Age: 1 Year
  Sex: Male

DRUGS (10)
  1. SYNAGIS [Suspect]
     Indication: HEART DISEASE CONGENITAL
     Route: 030
     Dates: start: 20120926, end: 20130218
  2. METOCLOPRAMIDE [Concomitant]
  3. FRUSEMIDE [Concomitant]
  4. PROPRANOLOL [Concomitant]
  5. PULMICORT [Concomitant]
  6. VENTOLIN [Concomitant]
  7. MIDAZOLAM [Concomitant]
  8. PARACETAMOL [Concomitant]
  9. ORAMORPH [Concomitant]
  10. MOVICOL [Concomitant]

REACTIONS (1)
  - Death [Fatal]
